FAERS Safety Report 8012135-5 (Version None)
Quarter: 2011Q4

REPORT INFORMATION
  Report Type: 
  Country: None (occurrence: None)
  Receive Date: 20111228
  Receipt Date: 20111227
  Transmission Date: 20120403
  Serious: Yes (Other)
  Sender: FDA-Public Use
  Company Number: FI-PFIZER INC-2011313641

PATIENT
  Age: 96 Year
  Sex: Female

DRUGS (12)
  1. EMCONCOR CHF [Concomitant]
     Indication: CARDIAC FAILURE
     Dosage: 1.25 MG, 1X/DAY
     Route: 048
  2. OMEPRAZOLE [Concomitant]
     Indication: PROPHYLAXIS
     Dosage: 20 MG, 1X/DAY
     Route: 048
  3. LYRICA [Suspect]
     Dosage: 75 MG, 1X/DAY
     Route: 048
     Dates: start: 20110901, end: 20110101
  4. LYRICA [Suspect]
     Dosage: 25 MG, 1X/DAY
     Route: 048
     Dates: start: 20111208, end: 20111209
  5. LYRICA [Suspect]
     Dosage: 75 MG, 1X/DAY
     Route: 048
     Dates: start: 20111210, end: 20111215
  6. FURESIS [Concomitant]
     Indication: CARDIAC FAILURE
     Dosage: 40 MG, 1X/DAY
     Route: 048
  7. MEDROL [Concomitant]
     Indication: RHEUMATOID ARTHRITIS
     Dosage: 8 MG, 1X/DAY
     Route: 048
  8. PARA-TABS [Concomitant]
     Indication: PAIN
     Dosage: 500 MG, 3X/DAY
     Route: 048
  9. LEVOLAC [Concomitant]
     Indication: CONSTIPATION
     Dosage: 20 ML, 1X/DAY
     Route: 048
  10. LYRICA [Suspect]
     Indication: NEURALGIA
     Dosage: 25 MG, 1X/DAY
     Route: 048
     Dates: end: 20110901
  11. MACROGOL [Concomitant]
     Indication: CONSTIPATION
     Dosage: 12 G, 1X/DAY
     Route: 048
  12. BUPRENORPHINE [Concomitant]
     Indication: PAIN
     Dosage: 15 MIKROG/H
     Route: 062

REACTIONS (8)
  - FATIGUE [None]
  - DISORIENTATION [None]
  - C-REACTIVE PROTEIN INCREASED [None]
  - SWELLING [None]
  - EYE INFECTION [None]
  - STRIDOR [None]
  - PYREXIA [None]
  - OCULAR HYPERAEMIA [None]
